FAERS Safety Report 4393531-4 (Version None)
Quarter: 2004Q3

REPORT INFORMATION
  Report Type: 
  Country: None (occurrence: None)
  Receive Date: 20040709
  Receipt Date: 20040504
  Transmission Date: 20050211
  Serious: Yes (Life-Threatening)
  Sender: FDA-Public Use
  Company Number: FR-BRISTOL-MYERS SQUIBB COMPANY-12579322

PATIENT
  Age: 67 Year
  Sex: Male

DRUGS (6)
  1. CEFAZOLIN [Suspect]
     Indication: ANTIBACTERIAL PROPHYLAXIS
     Route: 042
  2. KETALAR [Concomitant]
  3. ESMERON [Concomitant]
  4. SUFENTA [Concomitant]
  5. PROPOFOL [Concomitant]
  6. TIBERAL [Concomitant]

REACTIONS (4)
  - ANAPHYLACTIC REACTION [None]
  - ERYTHEMA [None]
  - HYPOTENSION [None]
  - TACHYCARDIA [None]
